FAERS Safety Report 5574864-2 (Version None)
Quarter: 2007Q4

REPORT INFORMATION
  Report Type: 
  Country: None (occurrence: None)
  Receive Date: 20071227
  Receipt Date: 20071102
  Transmission Date: 20080405
  Serious: Yes (Disabling, Other)
  Sender: FDA-Public Use
  Company Number: US-PURDUE-USA_2007_0030843

PATIENT
  Sex: Male

DRUGS (1)
  1. OXYCONTIN [Suspect]
     Indication: BACK PAIN
     Dates: start: 19990901, end: 20050401

REACTIONS (4)
  - DEPENDENCE [None]
  - DRUG DETOXIFICATION [None]
  - IMPRISONMENT [None]
  - MENTAL DISORDER [None]
